FAERS Safety Report 8479736-1 (Version None)
Quarter: 2012Q2

REPORT INFORMATION
  Report Type: 
  Country: None (occurrence: None)
  Receive Date: 20120629
  Receipt Date: 20120627
  Transmission Date: 20120825
  Serious: Yes (Death, Hospitalization)
  Sender: FDA-Public Use
  Company Number: FR-ROCHE-1079260

PATIENT
  Sex: Male
  Weight: 74 kg

DRUGS (4)
  1. CARMUSTINE [Suspect]
     Indication: MALIGNANT LYMPHOID NEOPLASM
     Route: 065
     Dates: start: 20120602, end: 20120602
  2. CYTARABINE [Suspect]
     Indication: MALIGNANT LYMPHOID NEOPLASM
     Route: 065
     Dates: start: 20120601, end: 20120601
  3. MABTHERA [Suspect]
     Indication: MALIGNANT LYMPHOID NEOPLASM
     Route: 065
     Dates: start: 20120531, end: 20120531
  4. METHOTREXATE [Suspect]
     Indication: MALIGNANT LYMPHOID NEOPLASM
     Route: 065
     Dates: start: 20120531, end: 20120531

REACTIONS (5)
  - SEPTIC SHOCK [None]
  - LUNG DISORDER [None]
  - BONE MARROW FAILURE [None]
  - COMA [None]
  - INTRACRANIAL PRESSURE INCREASED [None]
